FAERS Safety Report 22611643 (Version 2)
Quarter: 2023Q2

REPORT INFORMATION
  Report Type: Spontaneous
  Country: US (occurrence: US)
  Receive Date: 20230616
  Receipt Date: 20230620
  Transmission Date: 20230722
  Serious: Yes (Other)
  Sender: FDA-Public Use
  Company Number: US-BAUSCHBL-2023BNL005102

PATIENT
  Sex: Male

DRUGS (6)
  1. LATANOPROSTENE BUNOD [Suspect]
     Active Substance: LATANOPROSTENE BUNOD
     Indication: Open angle glaucoma
     Route: 065
  2. BRIMONIDINE TARTRATE [Suspect]
     Active Substance: BRIMONIDINE TARTRATE
     Indication: Open angle glaucoma
     Route: 065
  3. METHAZOLAMIDE [Suspect]
     Active Substance: METHAZOLAMIDE
     Indication: Open angle glaucoma
     Route: 048
  4. ACETAZOLAMIDE [Suspect]
     Active Substance: ACETAZOLAMIDE
     Indication: Open angle glaucoma
     Dosage: SYSTEMIC
     Route: 065
  5. NETARSUDIL [Concomitant]
     Active Substance: NETARSUDIL
     Indication: Open angle glaucoma
     Dosage: DAILY IN THE LEFT EYE
  6. TIMOLOL MALEATE [Concomitant]
     Active Substance: TIMOLOL MALEATE
     Indication: Ocular hypertension
     Dosage: IN BOTH EYES

REACTIONS (3)
  - Iridocyclitis [Unknown]
  - Ocular hyperaemia [Unknown]
  - Abdominal discomfort [Unknown]
